FAERS Safety Report 12192366 (Version 1)
Quarter: 2016Q1

REPORT INFORMATION
  Report Type: Spontaneous
  Country: IN (occurrence: IN)
  Receive Date: 20160318
  Receipt Date: 20160318
  Transmission Date: 20160526
  Serious: Yes (Other)
  Sender: FDA-Public Use
  Company Number: IN-MYLANLABS-2016M1011679

PATIENT

DRUGS (4)
  1. WARFARIN [Suspect]
     Active Substance: WARFARIN
     Indication: DEEP VEIN THROMBOSIS
     Dosage: UNK
     Route: 065
  2. QUETIAPINE [Interacting]
     Active Substance: QUETIAPINE
     Indication: HALLUCINATION, VISUAL
  3. QUETIAPINE [Interacting]
     Active Substance: QUETIAPINE
     Indication: RESTLESSNESS
  4. QUETIAPINE [Interacting]
     Active Substance: QUETIAPINE
     Indication: SLEEP DISORDER
     Dosage: AT BEDTIME
     Route: 065

REACTIONS (2)
  - Labelled drug-drug interaction medication error [Recovered/Resolved]
  - Gastrointestinal haemorrhage [Recovered/Resolved]
